FAERS Safety Report 7910745-4 (Version None)
Quarter: 2011Q4

REPORT INFORMATION
  Report Type: 
  Country: None (occurrence: None)
  Receive Date: 20111112
  Receipt Date: 20111102
  Transmission Date: 20120403
  Serious: Yes (Hospitalization, Other)
  Sender: FDA-Public Use
  Company Number: US-ASTRAZENECA-2010SE16460

PATIENT
  Age: 903 Month
  Sex: Female

DRUGS (18)
  1. LOPRESSOR [Concomitant]
  2. AZOR [Concomitant]
     Dosage: 10MG/40MG ONE DAILY
  3. CRESTOR [Suspect]
     Route: 048
  4. ACETAMINOPHEN [Concomitant]
     Dosage: OCCASIONALLY
  5. ASPIRIN [Concomitant]
  6. PROTONIX [Concomitant]
  7. SYMBICORT [Suspect]
     Dosage: 160/4.5 MCG  TWO TIMES A DAY AS NEEDED
     Route: 055
  8. ARIMIDEX [Suspect]
     Indication: BREAST CANCER
     Route: 048
     Dates: start: 20070101
  9. ARIMIDEX [Suspect]
     Route: 048
     Dates: start: 20080117
  10. SYNTHROID [Concomitant]
  11. ELAVIL [Concomitant]
  12. ADRIAMYCIN PFS [Concomitant]
  13. SINGULAIR [Concomitant]
  14. PLAVIX [Concomitant]
  15. CYTOXAL [Concomitant]
  16. HERCEPTIN [Concomitant]
  17. CYANOCOBALAMIN [Concomitant]
  18. POTASSIUM CHLORIDE [Concomitant]
     Dosage: ONE AND HALF TEASPOONS

REACTIONS (5)
  - POLYP [None]
  - JOINT INJURY [None]
  - CATARACT [None]
  - CHOLELITHIASIS [None]
  - HIATUS HERNIA [None]
